FAERS Safety Report 8302379-7 (Version None)
Quarter: 2012Q2

REPORT INFORMATION
  Report Type: 
  Country: None (occurrence: None)
  Receive Date: 20120420
  Receipt Date: 20120410
  Transmission Date: 20120825
  Serious: Yes (Hospitalization)
  Sender: FDA-Public Use
  Company Number: FR-JNJFOC-20120408212

PATIENT
  Age: 37 Year
  Sex: Female

DRUGS (5)
  1. AMITRIPTYLINE HCL [Suspect]
     Indication: PAIN
     Route: 048
     Dates: start: 20071101
  2. CLONAZEPAM [Concomitant]
     Indication: PAIN
     Route: 065
     Dates: end: 20071101
  3. LYRICA [Suspect]
     Indication: PAIN
     Route: 048
     Dates: start: 20071101
  4. ACETAMINOPHEN AND TRAMADOL HCL [Suspect]
     Indication: PAIN
     Route: 048
     Dates: start: 20071101
  5. TRAMADOL HCL [Suspect]
     Indication: PAIN
     Route: 048
     Dates: start: 20071101

REACTIONS (1)
  - COAGULOPATHY [None]
